FAERS Safety Report 8018852-5 (Version None)
Quarter: 2012Q1

REPORT INFORMATION
  Report Type: 
  Country: None (occurrence: None)
  Receive Date: 20120103
  Receipt Date: 20111219
  Transmission Date: 20120608
  Serious: Yes (Death)
  Sender: FDA-Public Use
  Company Number: US-JNJFOC-20111212080

PATIENT
  Age: 23 Year
  Sex: Male

DRUGS (12)
  1. METOPROLOL SUCCINATE [Suspect]
     Indication: SUICIDE ATTEMPT
     Route: 048
  2. IBUPROFEN [Suspect]
     Indication: SUICIDE ATTEMPT
     Route: 048
  3. BUPROPION HCL [Suspect]
     Indication: SUICIDE ATTEMPT
     Route: 048
  4. BENZTROPINE MESYLATE [Suspect]
     Indication: SUICIDE ATTEMPT
     Route: 048
  5. CLINDAMYCIN [Suspect]
     Indication: SUICIDE ATTEMPT
     Route: 048
  6. CEPHALEXIN [Suspect]
     Indication: SUICIDE ATTEMPT
     Route: 048
  7. MUSCLE RELAXANT [Suspect]
     Indication: SUICIDE ATTEMPT
     Route: 048
  8. UNSPECIFIED ANTILIPEMIC MEDICATION [Suspect]
     Indication: SUICIDE ATTEMPT
     Route: 048
  9. WARFARIN SODIUM [Suspect]
     Indication: SUICIDE ATTEMPT
     Route: 048
  10. FEXOFENADINE [Suspect]
     Indication: SUICIDE ATTEMPT
     Route: 048
  11. HALOPERIDOL [Suspect]
     Indication: SUICIDE ATTEMPT
     Route: 048
  12. VERAPAMIL [Suspect]
     Indication: SUICIDE ATTEMPT
     Route: 048

REACTIONS (1)
  - TOXICITY TO VARIOUS AGENTS [None]
